FAERS Safety Report 4679911-8 (Version None)
Quarter: 2005Q2

REPORT INFORMATION
  Report Type: 
  Country: None (occurrence: None)
  Receive Date: 20050602
  Receipt Date: 20040614
  Transmission Date: 20051028
  Serious: Yes (Other)
  Sender: FDA-Public Use
  Company Number: PHBS2004BE07992

PATIENT
  Age: 74 Year
  Sex: Male

DRUGS (4)
  1. AREDIA [Suspect]
     Indication: MULTIPLE MYELOMA
     Dosage: 90 MG, UNK
     Dates: start: 19980611, end: 20020719
  2. MELPHALAN [Concomitant]
     Dates: start: 19980101, end: 19991001
  3. PREDNISONE TAB [Concomitant]
     Dates: start: 19980101, end: 19991001
  4. ZOMETA [Suspect]
     Indication: MULTIPLE MYELOMA
     Dosage: 4 MG, QMO
     Route: 042
     Dates: start: 20020913, end: 20040426

REACTIONS (9)
  - BACTERIAL INFECTION [None]
  - BONE OPERATION [None]
  - CHRONIC SINUSITIS [None]
  - FISTULA [None]
  - GENERAL PHYSICAL HEALTH DETERIORATION [None]
  - INFLAMMATION [None]
  - OSTEONECROSIS [None]
  - PRIMARY SEQUESTRUM [None]
  - TOOTH EXTRACTION [None]
